FAERS Safety Report 4922862-1 (Version None)
Quarter: 2006Q1

REPORT INFORMATION
  Report Type: 
  Country: None (occurrence: None)
  Receive Date: 20060224
  Receipt Date: 20060102
  Transmission Date: 20060701
  Serious: Yes (Hospitalization)
  Sender: FDA-Public Use
  Company Number: FR-MERCK-0601FRA00010

PATIENT
  Age: 42 Year
  Sex: Male
  Weight: 65 kg

DRUGS (3)
  1. FOSAMAX [Suspect]
     Indication: OSTEOPOROSIS
     Route: 048
     Dates: start: 19980101
  2. PREDNISONE [Concomitant]
     Indication: JUVENILE ARTHRITIS
     Route: 048
     Dates: start: 19860101
  3. ADALIMUMAB [Concomitant]
     Indication: JUVENILE ARTHRITIS
     Route: 058
     Dates: start: 20030101

REACTIONS (3)
  - DISLOCATION OF JOINT PROSTHESIS [None]
  - IMPAIRED HEALING [None]
  - PSEUDARTHROSIS [None]
